FAERS Safety Report 4522201-4 (Version None)
Quarter: 2004Q4

REPORT INFORMATION
  Report Type: 
  Country: None (occurrence: None)
  Receive Date: 20041207
  Receipt Date: 20041117
  Transmission Date: 20050328
  Serious: Yes (Other)
  Sender: FDA-Public Use
  Company Number: US_0411108314

PATIENT
  Age: 67 Year
  Sex: Female

DRUGS (3)
  1. EVISTA [Suspect]
     Indication: OSTEOPOROSIS
     Dates: start: 20010101
  2. ULTRAM [Concomitant]
  3. ATENOLOL [Concomitant]

REACTIONS (2)
  - CARCINOMA [None]
  - SKIN LESION [None]
